FAERS Safety Report 25213719 (Version 1)
Quarter: 2025Q2

REPORT INFORMATION
  Report Type: Spontaneous
  Country: CN (occurrence: CN)
  Receive Date: 20250418
  Receipt Date: 20250418
  Transmission Date: 20250717
  Serious: Yes (Other)
  Sender: PFIZER
  Company Number: CN-PFIZER INC-PV202500043174

PATIENT
  Age: 82 Year
  Sex: Male
  Weight: 60 kg

DRUGS (2)
  1. TIGECYCLINE [Suspect]
     Active Substance: TIGECYCLINE
     Indication: Sepsis
     Dosage: 50 MG, 2X/DAY
     Route: 041
     Dates: start: 20250325, end: 20250331
  2. SODIUM CHLORIDE [Concomitant]
     Active Substance: SODIUM CHLORIDE
     Indication: Vehicle solution use
     Dosage: 100 ML, 2X/DAY
     Route: 041
     Dates: start: 20250325, end: 20250331

REACTIONS (2)
  - Coagulopathy [Not Recovered/Not Resolved]
  - Gastric occult blood positive [Unknown]

NARRATIVE: CASE EVENT DATE: 20250327
